FAERS Safety Report 10273390 (Version 2)
Quarter: 2014Q3

REPORT INFORMATION
  Report Type: Spontaneous
  Country: US (occurrence: US)
  Receive Date: 20140702
  Receipt Date: 20140902
  Transmission Date: 20150326
  Serious: Yes (Other)
  Sender: FDA-Public Use
  Company Number: US-PFIZER INC-2014177587

PATIENT
  Age: 48 Year
  Sex: Female
  Weight: 57.6 kg

DRUGS (3)
  1. VICODIN [Concomitant]
     Active Substance: ACETAMINOPHEN\HYDROCODONE BITARTRATE
     Indication: PAIN
     Dosage: UNK
  2. CHANTIX [Suspect]
     Active Substance: VARENICLINE TARTRATE
     Indication: SMOKING CESSATION THERAPY
     Dosage: UNK
     Dates: start: 201106
  3. CHANTIX [Suspect]
     Active Substance: VARENICLINE TARTRATE
     Dosage: UNK
     Dates: start: 201311, end: 201312

REACTIONS (3)
  - Bedridden [Unknown]
  - Accident [Unknown]
  - Drug ineffective [Unknown]

NARRATIVE: CASE EVENT DATE: 2014
